FAERS Safety Report 5280039-7 (Version None)
Quarter: 2007Q1

REPORT INFORMATION
  Report Type: 
  Country: None (occurrence: None)
  Receive Date: 20070329
  Receipt Date: 20070314
  Transmission Date: 20070707
  Serious: No
  Sender: FDA-Public Use
  Company Number: US-AMGEN-US212968

PATIENT
  Sex: Female

DRUGS (4)
  1. NEULASTA [Suspect]
     Indication: CHEMOTHERAPY
     Route: 058
     Dates: start: 20070127
  2. TAXOL [Suspect]
     Dates: start: 20070101
  3. CARBOPLATIN [Suspect]
     Dates: start: 20070101
  4. PROCRIT [Concomitant]
     Dates: start: 20070101

REACTIONS (9)
  - ABDOMINAL PAIN [None]
  - ANAEMIA [None]
  - ANOREXIA [None]
  - BONE PAIN [None]
  - DEHYDRATION [None]
  - MALAISE [None]
  - MYALGIA [None]
  - NAUSEA [None]
  - URINARY TRACT INFECTION [None]
